FAERS Safety Report 6879435-3 (Version None)
Quarter: 2010Q3

REPORT INFORMATION
  Report Type: 
  Country: None (occurrence: None)
  Receive Date: 20100728
  Receipt Date: 20100721
  Transmission Date: 20110219
  Serious: Yes (Other)
  Sender: FDA-Public Use
  Company Number: PHHY2010JP44759

PATIENT
  Sex: Female

DRUGS (2)
  1. PARLODEL [Suspect]
     Route: 048
  2. CARBIDOPA AND LEVODOPA [Suspect]

REACTIONS (1)
  - PNEUMONIA ASPIRATION [None]
